FAERS Safety Report 14280072 (Version 1)
Quarter: 2017Q4

REPORT INFORMATION
  Report Type: Spontaneous
  Country: DE (occurrence: DE)
  Receive Date: 20171213
  Receipt Date: 20171213
  Transmission Date: 20180321
  Serious: Yes (Hospitalization)
  Sender: FDA-Public Use
  Company Number: DE-009507513-1712DEU006021

PATIENT
  Age: 80 Year
  Sex: Female

DRUGS (1)
  1. CELESTAMINE N [Suspect]
     Active Substance: BETAMETHASONE
     Indication: SWOLLEN TONGUE
     Dosage: UNK
     Route: 048

REACTIONS (2)
  - Drug ineffective [Unknown]
  - Dyspnoea [Unknown]

NARRATIVE: CASE EVENT DATE: 20170403
